FAERS Safety Report 9308305 (Version 2)
Quarter: 2013Q2

REPORT INFORMATION
  Report Type: Spontaneous
  Country: US (occurrence: US)
  Receive Date: 20130524
  Receipt Date: 20130606
  Transmission Date: 20140414
  Serious: Yes (Other)
  Sender: FDA-Public Use
  Company Number: US-TEVA-406444USA

PATIENT
  Age: 47 Year
  Sex: Female

DRUGS (1)
  1. TAMOXIFEN [Suspect]
     Indication: BREAST CANCER
     Dosage: 20 MILLIGRAM DAILY;
     Dates: start: 201301, end: 201303

REACTIONS (21)
  - Self-injurious ideation [Recovered/Resolved]
  - Depression [Recovered/Resolved]
  - Influenza like illness [Recovered/Resolved]
  - Dehydration [Recovered/Resolved]
  - Dry eye [Recovered/Resolved]
  - Eye pruritus [Unknown]
  - Vision blurred [Recovered/Resolved]
  - Swelling face [Recovered/Resolved]
  - Blister [Recovered/Resolved]
  - Skin burning sensation [Recovered/Resolved]
  - Pruritus [Recovered/Resolved]
  - Lip swelling [Unknown]
  - Oral pruritus [Recovered/Resolved]
  - Swollen tongue [Recovered/Resolved]
  - Arthralgia [Recovered/Resolved]
  - Pain [Recovered/Resolved]
  - Drug hypersensitivity [Recovered/Resolved]
  - Skin exfoliation [Unknown]
  - Pruritus [Unknown]
  - Fungal infection [Unknown]
  - Vaginal infection [Unknown]
